FAERS Safety Report 17857855 (Version 1)
Quarter: 2020Q2

REPORT INFORMATION
  Report Type: Spontaneous
  Country: US (occurrence: US)
  Receive Date: 20200604
  Receipt Date: 20200604
  Transmission Date: 20200714
  Serious: Yes (Other)
  Sender: FDA-Public Use
  Company Number: US-CIPLA LTD.-2020US03722

PATIENT

DRUGS (4)
  1. CYCLOBENZAPRINE. [Suspect]
     Active Substance: CYCLOBENZAPRINE
     Dosage: 5 MILLIGRAM, QD (TOOK MEDICATION AT 10:00 AM)
     Route: 048
     Dates: start: 20200520
  2. PREDNISONE. [Concomitant]
     Active Substance: PREDNISONE
     Indication: NERVE COMPRESSION
     Dosage: 10 MILLIGRAM, TID (3 TABLETS)
     Route: 065
     Dates: start: 20200512, end: 20200523
  3. CYCLOBENZAPRINE. [Suspect]
     Active Substance: CYCLOBENZAPRINE
     Indication: NERVE COMPRESSION
     Dosage: UNK
     Route: 065
     Dates: start: 2019
  4. CYCLOBENZAPRINE. [Suspect]
     Active Substance: CYCLOBENZAPRINE
     Dosage: 5 MILLIGRAM, TID, AS NEEDED
     Route: 048
     Dates: start: 20200512

REACTIONS (6)
  - Back pain [Not Recovered/Not Resolved]
  - Off label use [Not Recovered/Not Resolved]
  - Syncope [Not Recovered/Not Resolved]
  - Road traffic accident [Recovered/Resolved]
  - Product use in unapproved indication [Not Recovered/Not Resolved]
  - Concussion [Not Recovered/Not Resolved]

NARRATIVE: CASE EVENT DATE: 2019
